FAERS Safety Report 16642356 (Version 1)
Quarter: 2019Q3

REPORT INFORMATION
  Report Type: Spontaneous
  Country: US (occurrence: US)
  Receive Date: 20190728
  Receipt Date: 20190728
  Transmission Date: 20191004
  Serious: No
  Sender: FDA-Public Use
  Company Number: None

PATIENT
  Age: 16 Year
  Sex: Male
  Weight: 45.9 kg

DRUGS (5)
  1. SINGULAIR [Concomitant]
     Active Substance: MONTELUKAST SODIUM
  2. METHYLPHENIDATE 54 MG ER OSM TABLET GENERIC FOR CONCERTA [Suspect]
     Active Substance: METHYLPHENIDATE HYDROCHLORIDE
     Indication: ATTENTION DEFICIT/HYPERACTIVITY DISORDER
     Dosage: ?          QUANTITY:1 TABLET(S);?
     Route: 048
     Dates: start: 20190713
  3. VIMPAT [Concomitant]
     Active Substance: LACOSAMIDE
  4. ZYRTEC [Concomitant]
     Active Substance: CETIRIZINE HYDROCHLORIDE
  5. LAMICTAL [Concomitant]
     Active Substance: LAMOTRIGINE

REACTIONS (5)
  - Symptom recurrence [None]
  - Drug ineffective [None]
  - Product complaint [None]
  - Attention deficit/hyperactivity disorder [None]
  - Product substitution issue [None]

NARRATIVE: CASE EVENT DATE: 20190713
